FAERS Safety Report 4334634-X (Version None)
Quarter: 2004Q1

REPORT INFORMATION
  Report Type: 
  Country: None (occurrence: None)
  Receive Date: 20040329
  Receipt Date: 20031217
  Transmission Date: 20041129
  Serious: No
  Sender: FDA-Public Use
  Company Number: 03P-163-0245950-00

PATIENT
  Age: 49 Year
  Sex: Female
  Weight: 52.1637 kg

DRUGS (4)
  1. HUMIRA [Suspect]
     Indication: RHEUMATOID ARTHRITIS
     Dosage: 40 MCG, 1 IN 2 WK, SUBCUTANEOUS
     Route: 058
     Dates: start: 20030623, end: 20031001
  2. METHOTREXATE SODIUM [Concomitant]
  3. PREDNISONE [Concomitant]
  4. HYDROXYCHLOROQUINE PHOSPHATE [Concomitant]

REACTIONS (1)
  - PRURITUS [None]
